FAERS Safety Report 5910649-2 (Version None)
Quarter: 2008Q4

REPORT INFORMATION
  Report Type: 
  Country: None (occurrence: None)
  Receive Date: 20081007
  Receipt Date: 20080901
  Transmission Date: 20090506
  Serious: Yes (Hospitalization, Disabling)
  Sender: FDA-Public Use
  Company Number: NL-ASTRAZENECA-2008AC02386

PATIENT
  Age: 58 Year
  Sex: Female
  Weight: 65 kg

DRUGS (3)
  1. SYMBICORT [Suspect]
     Indication: ASTHMA
     Dosage: 200/6 MCG
     Route: 055
     Dates: start: 19880101, end: 20080816
  2. ACETYLSALICYLZUUR CARDIO [Concomitant]
     Route: 048
  3. LESCOL [Concomitant]
     Route: 048

REACTIONS (3)
  - HAEMATOMA [None]
  - SKIN ATROPHY [None]
  - SKIN ULCER [None]
